FAERS Safety Report 4413496-6 (Version None)
Quarter: 2004Q2

REPORT INFORMATION
  Report Type: 
  Country: None (occurrence: None)
  Receive Date: 20040630
  Receipt Date: 20040324
  Transmission Date: 20050107
  Serious: No
  Sender: FDA-Public Use
  Company Number: 04P-163-0254635-00

PATIENT
  Age: 54 Year
  Sex: Female
  Weight: 82.5547 kg

DRUGS (9)
  1. HUMIRA [Suspect]
     Indication: RHEUMATOID ARTHRITIS
     Dosage: 40 MG, 1 IN 2 WK, SUBCUTANEOUS
     Route: 058
     Dates: start: 20040201
  2. NABUMETONE [Concomitant]
  3. VICODIN [Concomitant]
  4. FOLIC ACID [Concomitant]
  5. PREDNISONE TAB [Concomitant]
  6. HYDROXYCHLOROQUINE PHOSPHATE [Concomitant]
  7. CLONAZEPAM [Concomitant]
  8. VENLAFAXINE HCL [Concomitant]
  9. TRAZODONE HCL [Concomitant]

REACTIONS (1)
  - INJECTION SITE HAEMORRHAGE [None]
